FAERS Safety Report 5536455-9 (Version None)
Quarter: 2007Q4

REPORT INFORMATION
  Report Type: 
  Country: None (occurrence: None)
  Receive Date: 20071206
  Receipt Date: 20071128
  Transmission Date: 20080405
  Serious: Yes (Hospitalization)
  Sender: FDA-Public Use
  Company Number: JP-MERCK-0710USA02878

PATIENT
  Age: 40 Year
  Sex: Female

DRUGS (6)
  1. ZETIA [Suspect]
     Indication: HYPERLIPIDAEMIA
     Route: 048
     Dates: start: 20070918, end: 20071009
  2. ETHYL ICOSAPENTATE [Concomitant]
     Route: 065
     Dates: start: 20070516, end: 20071008
  3. FLUNITRAZEPAM [Concomitant]
     Route: 065
     Dates: start: 20070306, end: 20071008
  4. NITRAZEPAM [Concomitant]
     Route: 065
     Dates: start: 20070306
  5. QUAZEPAM [Concomitant]
     Route: 065
     Dates: start: 20070307
  6. CHLORPROMAZINE HYDROCHLORIDE AND PHENOBARBITAL AND PROMETHAZINE HYDROC [Concomitant]
     Route: 065
     Dates: start: 20070508, end: 20071008

REACTIONS (8)
  - ASPARTATE AMINOTRANSFERASE INCREASED [None]
  - BACK PAIN [None]
  - BLOOD CREATINE PHOSPHOKINASE INCREASED [None]
  - BLOOD LACTATE DEHYDROGENASE INCREASED [None]
  - HYPERTHERMIA [None]
  - MYOGLOBIN BLOOD INCREASED [None]
  - MYOGLOBIN URINE PRESENT [None]
  - WHITE BLOOD CELL COUNT INCREASED [None]
